FAERS Safety Report 5060219-6 (Version None)
Quarter: 2006Q3

REPORT INFORMATION
  Report Type: 
  Country: None (occurrence: None)
  Receive Date: 20060720
  Receipt Date: 20060713
  Transmission Date: 20061208
  Serious: Yes (Other)
  Sender: FDA-Public Use
  Company Number: GB-2006-019067

PATIENT
  Sex: Female

DRUGS (1)
  1. MIRENA [Suspect]
     Indication: CONTRACEPTION
     Dosage: 20 UG/DAY, CONT, INTRA-UTERINE
     Route: 015
     Dates: start: 20040101

REACTIONS (16)
  - ABDOMINAL DISTENSION [None]
  - ABDOMINAL PAIN UPPER [None]
  - ACNE [None]
  - ALOPECIA [None]
  - BACK PAIN [None]
  - DEPRESSION [None]
  - DISTURBANCE IN ATTENTION [None]
  - FATIGUE [None]
  - FURUNCLE [None]
  - HEADACHE [None]
  - LOSS OF LIBIDO [None]
  - MOOD SWINGS [None]
  - NIGHT SWEATS [None]
  - OVARIAN CYST [None]
  - SLEEP DISORDER [None]
  - WEIGHT INCREASED [None]
